FAERS Safety Report 5129661-9 (Version None)
Quarter: 2006Q4

REPORT INFORMATION
  Report Type: 
  Country: None (occurrence: None)
  Receive Date: 20061018
  Receipt Date: 20060908
  Transmission Date: 20070319
  Serious: Yes (Death)
  Sender: FDA-Public Use
  Company Number: US-GLAXOSMITHKLINE-A0619762A

PATIENT
  Age: 56 Year
  Sex: Female

DRUGS (7)
  1. PAXIL CR [Suspect]
     Indication: DRUG USE FOR UNKNOWN INDICATION
     Route: 048
     Dates: start: 20060512
  2. REMERON [Concomitant]
  3. XANAX [Concomitant]
     Dates: end: 20060810
  4. KLONOPIN [Concomitant]
     Dates: start: 20060811
  5. LISINOPRIL AND HYDROCHLOROTHIAZIDE [Concomitant]
  6. LEVOTHYROXINE SODIUM [Concomitant]
  7. IMITREX [Concomitant]

REACTIONS (6)
  - DEATH [None]
  - FEELING ABNORMAL [None]
  - GAIT DISTURBANCE [None]
  - OPIATES POSITIVE [None]
  - SPEECH DISORDER [None]
  - TREMOR [None]
